FAERS Safety Report 5316482-7 (Version None)
Quarter: 2007Q2

REPORT INFORMATION
  Report Type: 
  Country: None (occurrence: None)
  Receive Date: 20070430
  Receipt Date: 20070419
  Transmission Date: 20071010
  Serious: Yes (Hospitalization)
  Sender: FDA-Public Use
  Company Number: 07H-087-0312460-00

PATIENT
  Age: 57 Year
  Sex: Male
  Weight: 52 kg

DRUGS (10)
  1. PRECEDEX [Suspect]
     Indication: SEDATIVE THERAPY
     Dosage: 0.4 MCG/KG/HR, INTRAVENOUS
     Route: 042
     Dates: start: 20061127, end: 20061128
  2. CEFTAZIDIME (MODACIN) [Concomitant]
  3. DIPRIVAN [Concomitant]
  4. FENTANYL [Concomitant]
  5. VECURONIUM BROMIDE (MUSCURATE) [Concomitant]
  6. NICARDIPINE HYDROCHLORIDE (PERDIPINE) [Concomitant]
  7. ETILEFRINE HYDROCHLORIDE (EFFORTIL) [Concomitant]
  8. SEVOFLURANE [Concomitant]
  9. MIDAZOLAM (DORMICUM) [Concomitant]
  10. DOPAMINE HYDROCHLORIDE (INOVAN) [Concomitant]

REACTIONS (1)
  - HYPERBILIRUBINAEMIA [None]
